FAERS Safety Report 23131075 (Version 13)
Quarter: 2024Q1

REPORT INFORMATION
  Report Type: Spontaneous
  Country: JP (occurrence: JP)
  Receive Date: 20231031
  Receipt Date: 20240319
  Transmission Date: 20240409
  Serious: Yes (Other)
  Sender: FDA-Public Use
  Company Number: JP-BRISTOL-MYERS SQUIBB COMPANY-2023-153823

PATIENT
  Age: 60 Year
  Sex: Male

DRUGS (4)
  1. YERVOY [Suspect]
     Active Substance: IPILIMUMAB
     Indication: Non-small cell lung cancer recurrent
     Route: 041
  2. OPDIVO [Suspect]
     Active Substance: NIVOLUMAB
     Indication: Non-small cell lung cancer recurrent
     Route: 041
  3. CARBOPLATIN [Suspect]
     Active Substance: CARBOPLATIN
     Indication: Non-small cell lung cancer recurrent
  4. PEMETREXED [Suspect]
     Active Substance: PEMETREXED
     Indication: Non-small cell lung cancer recurrent

REACTIONS (12)
  - Cytokine release syndrome [Unknown]
  - Hyperferritinaemia [Unknown]
  - Procalcitonin increased [Unknown]
  - Platelet count decreased [Unknown]
  - C-reactive protein increased [Unknown]
  - Hepatic enzyme increased [Unknown]
  - Coagulopathy [Unknown]
  - Arthralgia [Recovered/Resolved]
  - Rash erythematous [Recovered/Resolved]
  - Mucosal inflammation [Unknown]
  - Sepsis [Unknown]
  - Haemophagocytic lymphohistiocytosis [Unknown]
